FAERS Safety Report 4469407-0 (Version None)
Quarter: 2004Q4

REPORT INFORMATION
  Report Type: 
  Country: None (occurrence: None)
  Receive Date: 20041008
  Receipt Date: 20040616
  Transmission Date: 20050328
  Serious: No
  Sender: FDA-Public Use
  Company Number: US-BRISTOL-MYERS SQUIBB COMPANY-12617312

PATIENT
  Sex: Male

DRUGS (1)
  1. AVAPRO [Suspect]
     Dosage: 300 MG FOR A FEW YRS, INCR TO 900 MG (3TABS)/D, PT STOPPED; RE-INITIATED ON 600MG (2TABS)/D
     Route: 048

REACTIONS (1)
  - PROTEIN URINE [None]
